FAERS Safety Report 23806574 (Version 2)
Quarter: 2024Q2

REPORT INFORMATION
  Report Type: Spontaneous
  Country: IN (occurrence: IN)
  Receive Date: 20240502
  Receipt Date: 20240621
  Transmission Date: 20240716
  Serious: Yes (Death, Other)
  Sender: FDA-Public Use
  Company Number: IN-TAKEDA-2024TUS041270

PATIENT
  Age: 12 Year
  Sex: Male
  Weight: 25 kg

DRUGS (1)
  1. VPRIV [Suspect]
     Active Substance: VELAGLUCERASE ALFA
     Indication: Gaucher^s disease
     Dosage: UNK UNK, 2/MONTH
     Route: 065
     Dates: start: 20140106, end: 20140128

REACTIONS (1)
  - Protein-losing gastroenteropathy [Fatal]

NARRATIVE: CASE EVENT DATE: 20240201
